FAERS Safety Report 4959394-0 (Version None)
Quarter: 2006Q1

REPORT INFORMATION
  Report Type: 
  Country: None (occurrence: None)
  Receive Date: 20060331
  Receipt Date: 20050721
  Transmission Date: 20060701
  Serious: Yes (Hospitalization, Disabling, Other)
  Sender: FDA-Public Use
  Company Number: US-MERCK-0507USA03287

PATIENT
  Age: 19 Year
  Sex: Male
  Weight: 120 kg

DRUGS (2)
  1. VIOXX [Suspect]
     Indication: PAIN
     Route: 048
     Dates: start: 20011001, end: 20040305
  2. VIOXX [Suspect]
     Indication: ARTHRITIS
     Route: 048
     Dates: start: 20011001, end: 20040305

REACTIONS (17)
  - ALANINE AMINOTRANSFERASE INCREASED [None]
  - BLOOD PRESSURE INCREASED [None]
  - CEREBROVASCULAR ACCIDENT [None]
  - COLLAPSE OF LUNG [None]
  - CONVULSION [None]
  - EMBOLISM [None]
  - EMOTIONAL DISTRESS [None]
  - INTRACRANIAL PRESSURE INCREASED [None]
  - LIGAMENT INJURY [None]
  - MITRAL VALVE PROLAPSE [None]
  - MOUTH CYST [None]
  - PLEURAL EFFUSION [None]
  - PNEUMOTHORAX [None]
  - PULMONARY INFARCTION [None]
  - SKULL MALFORMATION [None]
  - VENOUS THROMBOSIS [None]
  - WOUND INFECTION [None]
